FAERS Safety Report 15728142 (Version 1)
Quarter: 2018Q4

REPORT INFORMATION
  Report Type: Spontaneous
  Country: US (occurrence: US)
  Receive Date: 20181217
  Receipt Date: 20181217
  Transmission Date: 20190205
  Serious: Yes (Hospitalization, Other)
  Sender: FDA-Public Use
  Company Number: US-ACCORD-096531

PATIENT
  Age: 13 Year
  Sex: Female

DRUGS (4)
  1. CEFTRIAXONE. [Concomitant]
     Active Substance: CEFTRIAXONE
  2. VANCOMYCIN [Concomitant]
     Active Substance: VANCOMYCIN
  3. ACICLOVIR [Concomitant]
     Active Substance: ACYCLOVIR
  4. LEVETIRACETAM. [Suspect]
     Active Substance: LEVETIRACETAM
     Indication: SEIZURE
     Dosage: THREE TIMES DAILY
     Route: 048

REACTIONS (1)
  - Meningitis aseptic [Recovered/Resolved]
